FAERS Safety Report 7238578-5 (Version None)
Quarter: 2011Q1

REPORT INFORMATION
  Report Type: 
  Country: None (occurrence: None)
  Receive Date: 20110119
  Receipt Date: 20110119
  Transmission Date: 20110831
  Serious: No
  Sender: FDA-Public Use
  Company Number: None

PATIENT
  Sex: Female
  Weight: 68.0396 kg

DRUGS (1)
  1. SULFAMETHOXAZOLE AND TRIMETHOPRIM DOUBLE STRENGTH [Suspect]
     Indication: URINARY TRACT INFECTION
     Dosage: ONE TABLET TWICE DAILY
     Dates: start: 20110111, end: 20110114

REACTIONS (5)
  - RASH ERYTHEMATOUS [None]
  - RASH GENERALISED [None]
  - RASH PRURITIC [None]
  - NO THERAPEUTIC RESPONSE [None]
  - FEELING ABNORMAL [None]
